FAERS Safety Report 8155672-5 (Version None)
Quarter: 2012Q1

REPORT INFORMATION
  Report Type: 
  Country: None (occurrence: None)
  Receive Date: 20120222
  Receipt Date: 20120220
  Transmission Date: 20120608
  Serious: No
  Sender: FDA-Public Use
  Company Number: US-PFIZER INC-2012044810

PATIENT
  Sex: Female
  Weight: 70.3 kg

DRUGS (4)
  1. CHANTIX [Suspect]
     Dosage: 1 MG, 2X/DAY
     Route: 048
     Dates: start: 20120101, end: 20120214
  2. CHANTIX [Suspect]
     Indication: SMOKING CESSATION THERAPY
     Dosage: 0.5 MG, 1X/DAY
     Route: 048
     Dates: start: 20120101, end: 20120101
  3. AMBIEN [Concomitant]
     Indication: SLEEP DISORDER
     Dosage: UNK, AS NEEDED
  4. CHANTIX [Suspect]
     Dosage: 1 MG, 1X/DAY
     Route: 048
     Dates: start: 20120214

REACTIONS (4)
  - ABNORMAL DREAMS [None]
  - NAUSEA [None]
  - NIGHT SWEATS [None]
  - HEADACHE [None]
